FAERS Safety Report 9222959 (Version 1)
Quarter: 2013Q2

REPORT INFORMATION
  Report Type: Report from Study
  Country: GB (occurrence: GB)
  Receive Date: 20130410
  Receipt Date: 20130410
  Transmission Date: 20140414
  Serious: Yes (Hospitalization)
  Sender: FDA-Public Use
  Company Number: GB-ROCHE-1212133

PATIENT
  Age: 56 Year
  Sex: Male
  Weight: 88.7 kg

DRUGS (4)
  1. BEVACIZUMAB [Suspect]
     Indication: GASTRIC CANCER
     Dosage: 08/FEB/2013, LAST DOSE ADMINISTERED
     Route: 042
     Dates: start: 20130118
  2. CAPECITABINE [Suspect]
     Indication: GASTRIC CANCER
     Dosage: 19/FEB/2013, LAST DOSE ADMINISTERED
     Route: 048
     Dates: start: 20130118
  3. CISPLATIN [Suspect]
     Indication: GASTRIC CANCER
     Dosage: 08/FEB/2013, LAST DOSE ADMINISTERED
     Route: 042
  4. EPIRUBICIN [Suspect]
     Indication: GASTRIC CANCER
     Dosage: 08/FEB/2013, LAST DOSE ADMINISTERED
     Route: 042
     Dates: start: 20130118

REACTIONS (1)
  - Dysphagia [Unknown]
